FAERS Safety Report 24192390 (Version 1)
Quarter: 2024Q3

REPORT INFORMATION
  Report Type: Report from Study
  Country: US (occurrence: None)
  Receive Date: 20240809
  Receipt Date: 20240809
  Transmission Date: 20241017
  Serious: Yes (Hospitalization, Other)
  Sender: ASTRAZENECA
  Company Number: 2022A149270

PATIENT
  Age: 25145 Day
  Sex: Male
  Weight: 88 kg

DRUGS (22)
  1. FASENRA [Suspect]
     Active Substance: BENRALIZUMAB
     Dosage: INJECT 30 MG BY SUBCUTANEOUS ROUTE AS DIRECTED30MG/ML
     Route: 058
     Dates: start: 20211216
  2. DALIRESP [Suspect]
     Active Substance: ROFLUMILAST
     Dosage: 250
     Route: 048
     Dates: start: 20210616
  3. SYMBICORT [Suspect]
     Active Substance: BUDESONIDE\FORMOTEROL FUMARATE DIHYDRATE
     Dosage: INHALE 2 PUFFS BY MOUTH TWICE A DAY, RINSE MOUTH AFTER
     Route: 055
     Dates: start: 20211212
  4. FARXIGA [Suspect]
     Active Substance: DAPAGLIFLOZIN PROPANEDIOL
     Route: 048
  5. ATORVASTATIN [Concomitant]
     Active Substance: ATORVASTATIN
     Route: 048
  6. AZITHROMYCIN [Concomitant]
     Active Substance: AZITHROMYCIN
     Dosage: TAKE 1 TABLET EVERY MONDAY WEDNESDAY AND FRIDAY
  7. CEFDINIR [Concomitant]
     Active Substance: CEFDINIR
     Dosage: TAKE 1 CAPSULE(S) EVERY 12 HOURS BY ORAL ROUTE AS DIRECTED FOR 10 DAYS
     Route: 048
  8. CLONAZEPAM [Concomitant]
     Active Substance: CLONAZEPAM
     Route: 048
  9. FEXOFENADINE [Concomitant]
     Active Substance: FEXOFENADINE HYDROCHLORIDE
     Indication: Hypersensitivity
     Dosage: TAKE 1 TABLET BY MOUTH DAILY AS NEEDED
     Route: 048
  10. FLUTICASONE PROPIONATE [Concomitant]
     Active Substance: FLUTICASONE PROPIONATE
     Dosage: 50 MCG/ACTUATION NASAL SPRAY,SUSPENSION, INSTILL 1 SPRAY INTO EACH NOSTRIL DAILY AS NEEDED FOR AL...
     Route: 055
  11. GABAPENTIN [Concomitant]
     Active Substance: GABAPENTIN
     Route: 048
  12. IPRATROPIUM [Concomitant]
     Active Substance: IPRATROPIUM
     Dosage: INHALE 1 VIAL BY MOUTH 4 TIMES EVERY DAY NEEDED (0.5 MG-ALBUTEROL 3 MG (2.5 MG BASE)/3 ML NEBULIZ...
     Route: 055
  13. MIRTAZAPINE [Concomitant]
     Active Substance: MIRTAZAPINE
     Route: 048
  14. MONTELUKAST [Concomitant]
     Active Substance: MONTELUKAST SODIUM
     Route: 048
  15. PANTOPRAZOLE [Concomitant]
     Active Substance: PANTOPRAZOLE
     Dosage: TAKE 1 TABLET(S) EVERY DAY BY ORAL ROUTE AS DIRECTED FOR 90 DAYS
     Route: 048
  16. PREDNISONE [Concomitant]
     Active Substance: PREDNISONE
  17. PREDNISONE [Concomitant]
     Active Substance: PREDNISONE
     Dosage: TAKE 2TABLET(S) EVERY DAY BY ORAL ROUTE AS DIRECTED FOR5 DAYS.
  18. PREDNISONE [Concomitant]
     Active Substance: PREDNISONE
     Dosage: TAKE 1 TABLET EVERY DAY BY ORAL ROUTE AS DIRECTED FOR 90 DAYS.
     Route: 048
  19. SPIRIVA RESPIMAT [Concomitant]
     Active Substance: TIOTROPIUM BROMIDE
     Dosage: INHALE 2 PUFF DAILY AS DIRECTED
     Route: 055
  20. VENTOLIN HFA [Concomitant]
     Active Substance: ALBUTEROL SULFATE
     Indication: Dyspnoea
     Dosage: INHALE 2 PUFFS EVERY 4 TO 6 HOURS AS NEEDED
     Route: 055
  21. VENTOLIN HFA [Concomitant]
     Active Substance: ALBUTEROL SULFATE
     Indication: Wheezing
     Dosage: INHALE 2 PUFFS EVERY 4 TO 6 HOURS AS NEEDED
     Route: 055
  22. SERTRALINE [Concomitant]
     Active Substance: SERTRALINE HYDROCHLORIDE
     Route: 048

REACTIONS (14)
  - Anxiety [Unknown]
  - Asthma [Unknown]
  - Respiratory failure [Unknown]
  - Chronic obstructive pulmonary disease [Unknown]
  - Rhinorrhoea [Unknown]
  - Nasal congestion [Unknown]
  - Asthma [Unknown]
  - Emphysema [Unknown]
  - Gastrooesophageal reflux disease [Unknown]
  - Cough [Unknown]
  - Productive cough [Unknown]
  - Throat irritation [Unknown]
  - Dyspnoea [Recovered/Resolved]
  - Illness [Unknown]

NARRATIVE: CASE EVENT DATE: 20211216
